FAERS Safety Report 6634722-9 (Version None)
Quarter: 2010Q1

REPORT INFORMATION
  Report Type: 
  Country: None (occurrence: None)
  Receive Date: 20100315
  Receipt Date: 20100303
  Transmission Date: 20100710
  Serious: Yes (Hospitalization)
  Sender: FDA-Public Use
  Company Number: JP-BAYER-201018315GPV

PATIENT
  Age: 49 Year
  Sex: Female

DRUGS (5)
  1. ASPIRIN [Suspect]
     Indication: ACUTE MYOCARDIAL INFARCTION
  2. ASPIRIN [Suspect]
  3. CLOPIDOGREL [Suspect]
     Indication: ACUTE MYOCARDIAL INFARCTION
  4. CLOPIDOGREL [Suspect]
  5. UNFRACTIONED HEPARIN [Suspect]
     Indication: ACUTE MYOCARDIAL INFARCTION

REACTIONS (2)
  - PULMONARY HAEMORRHAGE [None]
  - THROMBOCYTOPENIA [None]
